FAERS Safety Report 6206448-7 (Version None)
Quarter: 2009Q2

REPORT INFORMATION
  Report Type: 
  Country: None (occurrence: None)
  Receive Date: 20090528
  Receipt Date: 20090521
  Transmission Date: 20091009
  Serious: Yes (Other)
  Sender: FDA-Public Use
  Company Number: PHEH2009US05204

PATIENT
  Age: 67 Year
  Sex: Male
  Weight: 100.68 kg

DRUGS (7)
  1. ZOMETA [Suspect]
     Indication: METASTASES TO BONE
     Dosage: 4 MG, QMO
     Route: 042
     Dates: start: 20070222, end: 20070530
  2. TAXOTERE [Concomitant]
  3. ELIGARD [Concomitant]
  4. CRESTOR [Concomitant]
  5. PRILOSEC [Concomitant]
  6. EFFEXOR [Concomitant]
  7. CALCIUM W/VITAMINS NOS [Concomitant]

REACTIONS (2)
  - BONE DISORDER [None]
  - OSTEONECROSIS [None]
